FAERS Safety Report 7003730-0 (Version None)
Quarter: 2010Q3

REPORT INFORMATION
  Report Type: 
  Country: None (occurrence: None)
  Receive Date: 20100920
  Receipt Date: 20090923
  Transmission Date: 20110219
  Serious: No
  Sender: FDA-Public Use
  Company Number: US-WYE-H11190009

PATIENT
  Sex: Male
  Weight: 72.64 kg

DRUGS (8)
  1. PROTONIX [Suspect]
     Indication: GASTROOESOPHAGEAL REFLUX DISEASE
     Route: 048
     Dates: start: 19990101
  2. ZETIA [Concomitant]
  3. CENTRUM SILVER [Concomitant]
  4. ERGOCALCIFEROL [Concomitant]
  5. LUNESTA [Concomitant]
  6. ACETYLSALICYLIC ACID [Concomitant]
  7. CRESTOR [Concomitant]
  8. METOPROLOL [Concomitant]

REACTIONS (2)
  - DRUG EFFECT DECREASED [None]
  - SALMONELLOSIS [None]
